FAERS Safety Report 7954373-3 (Version None)
Quarter: 2011Q4

REPORT INFORMATION
  Report Type: 
  Country: None (occurrence: None)
  Receive Date: 20111202
  Receipt Date: 20111130
  Transmission Date: 20120403
  Serious: Yes (Hospitalization, Other)
  Sender: FDA-Public Use
  Company Number: US-PFIZER INC-2009281401

PATIENT
  Sex: Female
  Weight: 88.4 kg

DRUGS (13)
  1. SUTENT [Suspect]
     Dosage: 37.5 MG, CYCLIC 1X/DAY
     Dates: start: 20091109
  2. QUINAPRIL [Concomitant]
     Dosage: 1 TABLET DAILY
  3. METOPROLOL [Concomitant]
     Dosage: 1 TABLET DAILY
  4. SUTENT [Suspect]
     Indication: METASTATIC RENAL CELL CARCINOMA
     Dosage: 50 MG, 1X/DAY
     Route: 048
     Dates: start: 20090926, end: 20091023
  5. SUTENT [Suspect]
     Dosage: 12.5 MG WITH 25 MG
  6. ALLOPURINOL [Concomitant]
     Dosage: 100 MG, 2 TABLETS DAILY
  7. BENICAR [Concomitant]
     Dosage: 1 TABLET DAILY
  8. SYNTHROID [Concomitant]
     Dosage: 125 MG, 1X/DAY
  9. ACTOS [Concomitant]
     Dosage: UNK
  10. HYDROCHLOROTHIAZIDE [Concomitant]
     Dosage: 25 MG, UNK
  11. GLUCOSAMINE [Concomitant]
     Dosage: 3 TIMES DAILY
  12. GLYBURIDE [Concomitant]
     Dosage: 3 MG, UNK
  13. CENTRUM [Concomitant]
     Dosage: DAILY

REACTIONS (6)
  - OEDEMA PERIPHERAL [None]
  - PNEUMONIA [None]
  - SWELLING FACE [None]
  - ANAEMIA [None]
  - DYSPNOEA [None]
  - HEART VALVE INCOMPETENCE [None]
